FAERS Safety Report 11928059 (Version 1)
Quarter: 2016Q1

REPORT INFORMATION
  Report Type: Spontaneous
  Country: US (occurrence: None)
  Receive Date: 20160119
  Receipt Date: 20160119
  Transmission Date: 20160526
  Serious: Yes (Other)
  Sender: FDA-Public Use
  Company Number: ADR-2015-00276

PATIENT
  Age: 27 Year
  Sex: Male

DRUGS (1)
  1. BACLOFEN INTRATHECAL [Suspect]
     Active Substance: BACLOFEN
     Indication: CEREBRAL PALSY

REACTIONS (12)
  - Discomfort [None]
  - Muscle tightness [None]
  - Irritability [None]
  - Fall [None]
  - Tremor [None]
  - Muscle spasms [None]
  - Musculoskeletal stiffness [None]
  - Anxiety [None]
  - Headache [None]
  - Hyperhidrosis [None]
  - Gastrointestinal disorder [None]
  - Pruritus [None]
